FAERS Safety Report 8333655-X (Version None)
Quarter: 2012Q2

REPORT INFORMATION
  Report Type: 
  Country: None (occurrence: None)
  Receive Date: 20120503
  Receipt Date: 20120420
  Transmission Date: 20120825
  Serious: Yes (Death, Hospitalization)
  Sender: FDA-Public Use
  Company Number: DE-AMGEN-DEUCT2011055427

PATIENT
  Age: 76 Year
  Sex: Male
  Weight: 72 kg

DRUGS (6)
  1. ENBREL [Suspect]
     Dosage: 50 MG, 2 TIMES/WK
     Dates: start: 20090817, end: 20110919
  2. CLOPIDOGREL [Suspect]
     Indication: MICROANGIOPATHY
     Dosage: 75 MG, QD
     Route: 048
     Dates: start: 20111111
  3. ENBREL [Suspect]
     Indication: RHEUMATOID ARTHRITIS
     Dosage: 25 MG, 2 TIMES/WK
     Dates: start: 20030320, end: 20090611
  4. CLOPIDOGREL [Suspect]
     Indication: VASCULAR OCCLUSION
     Dosage: 75 MG, QD
     Route: 048
     Dates: start: 20071201, end: 20111001
  5. PREDNISOLONE [Suspect]
     Indication: RHEUMATOID ARTHRITIS
     Dosage: 5-10 MG
     Route: 048
     Dates: start: 19931201
  6. PREDNISOLONE [Suspect]
     Dosage: 10 TO 20 MG DAILY
     Route: 048
     Dates: start: 19931201

REACTIONS (2)
  - PULMONARY HAEMORRHAGE [None]
  - BRONCHIAL CARCINOMA [None]
